FAERS Safety Report 17202781 (Version 1)
Quarter: 2019Q4

REPORT INFORMATION
  Report Type: Report from Study
  Country: JP (occurrence: JP)
  Receive Date: 20191226
  Receipt Date: 20191226
  Transmission Date: 20200122
  Serious: Yes (Other)
  Sender: FDA-Public Use
  Company Number: JP-ACTELION-A-CH2019-199674

PATIENT
  Age: 59 Year
  Sex: Male

DRUGS (18)
  1. PREDNISOLONE. [Concomitant]
     Active Substance: PREDNISOLONE
  2. OXYGEN. [Concomitant]
     Active Substance: OXYGEN
  3. LYRICA [Suspect]
     Active Substance: PREGABALIN
     Indication: PRODUCT USED FOR UNKNOWN INDICATION
     Route: 048
  4. PELEX [Concomitant]
  5. VFEND [Suspect]
     Active Substance: VORICONAZOLE
     Indication: PRODUCT USED FOR UNKNOWN INDICATION
     Route: 048
  6. OPSUMIT [Suspect]
     Active Substance: MACITENTAN
     Indication: PULMONARY ARTERIAL HYPERTENSION
     Dosage: 10 MG, QD
     Route: 048
     Dates: start: 20160601, end: 20190605
  7. MUCODYNE [Concomitant]
     Active Substance: CARBOCYSTEINE
  8. MYSLEE [Concomitant]
     Active Substance: ZOLPIDEM TARTRATE
  9. PREDONINE [Concomitant]
     Active Substance: PREDNISOLONE
  10. BAKTAR [Concomitant]
     Active Substance: SULFAMETHOXAZOLE\TRIMETHOPRIM
  11. SOLANAX [Concomitant]
     Active Substance: ALPRAZOLAM
  12. LASIX [Concomitant]
     Active Substance: FUROSEMIDE
  13. MONTELUKAST [Concomitant]
     Active Substance: MONTELUKAST SODIUM
  14. TAKEPRON [Concomitant]
     Active Substance: LANSOPRAZOLE
  15. ADOAIR [Concomitant]
     Active Substance: FLUTICASONE PROPIONATE\SALMETEROL XINAFOATE
  16. OPSUMIT [Suspect]
     Active Substance: MACITENTAN
     Indication: INTERSTITIAL LUNG DISEASE
  17. PLACODE [Concomitant]
     Active Substance: CHLORPHENIRAMINE MALEATE\DIHYDROCODEINE\METHYLEPHEDRINE HYDROCHLORIDE, DL-
  18. MEPTIN [Concomitant]
     Active Substance: PROCATEROL HYDROCHLORIDE

REACTIONS (3)
  - Hepatic function abnormal [Recovered/Resolved]
  - Aspartate aminotransferase increased [Recovered/Resolved]
  - Alanine aminotransferase increased [Recovered/Resolved]

NARRATIVE: CASE EVENT DATE: 20180322
